FAERS Safety Report 9480785 (Version 2)
Quarter: 2013Q3

REPORT INFORMATION
  Report Type: Spontaneous
  Country: US (occurrence: US)
  Receive Date: 20130828
  Receipt Date: 20130828
  Transmission Date: 20140515
  Serious: Yes (Hospitalization, Other)
  Sender: FDA-Public Use
  Company Number: US-AMGEN-KDL112679

PATIENT
  Age: 51 Year
  Sex: Male

DRUGS (2)
  1. ENBREL [Suspect]
     Indication: RHEUMATOID ARTHRITIS
     Dosage: 25 MG, 2 TIMES/WK
     Route: 058
     Dates: start: 20001004
  2. SULFASALAZINE [Concomitant]

REACTIONS (4)
  - Pleural effusion [Not Recovered/Not Resolved]
  - Pulmonary oedema [Unknown]
  - Rheumatoid arthritis [Unknown]
  - Condition aggravated [Unknown]
